FAERS Safety Report 16153757 (Version 1)
Quarter: 2019Q2

REPORT INFORMATION
  Report Type: Spontaneous
  Country: US (occurrence: US)
  Receive Date: 20190403
  Receipt Date: 20190403
  Transmission Date: 20190711
  Serious: No
  Sender: FDA-Public Use
  Company Number: US-PFIZER INC-2015411703

PATIENT
  Sex: Male
  Weight: 7 kg

DRUGS (5)
  1. GENOTROPIN MQ [Suspect]
     Active Substance: SOMATROPIN
     Indication: BLOOD GROWTH HORMONE
     Dosage: 2.5 ON THE SYRINGE ONCE A NIGHT INJECTION
     Dates: start: 201506
  2. GENOTROPIN MQ [Suspect]
     Active Substance: SOMATROPIN
     Indication: INTELLECTUAL DISABILITY
     Dosage: 0.6 MG, DAILY
  3. HYDROCORTISONE. [Concomitant]
     Active Substance: HYDROCORTISONE
     Indication: HORMONE THERAPY
     Dosage: 0.5 ML, 3X/DAY
  4. GENOTROPIN MQ [Suspect]
     Active Substance: SOMATROPIN
     Indication: SEPTO-OPTIC DYSPLASIA
  5. HYDROCORTISONE. [Concomitant]
     Active Substance: HYDROCORTISONE
     Dosage: 0.2 ML, 3X/DAY

REACTIONS (6)
  - Poor quality product administered [Unknown]
  - Wrong technique in product usage process [Unknown]
  - Arthralgia [Unknown]
  - Irritability [Unknown]
  - Drug ineffective [Unknown]
  - Product complaint [Unknown]
